FAERS Safety Report 6160184-4 (Version None)
Quarter: 2009Q2

REPORT INFORMATION
  Report Type: 
  Country: None (occurrence: None)
  Receive Date: 20090420
  Receipt Date: 20090410
  Transmission Date: 20091009
  Serious: Yes (Death, Hospitalization)
  Sender: FDA-Public Use
  Company Number: A0779261A

PATIENT
  Age: 43 Year
  Sex: Female
  Weight: 100 kg

DRUGS (4)
  1. AVANDIA [Suspect]
     Indication: DIABETES MELLITUS
     Dosage: 4MG PER DAY
     Route: 048
     Dates: start: 19991101, end: 20030501
  2. GLYBURIDE [Concomitant]
  3. MICRONASE [Concomitant]
  4. MULTIPLE MEDICATIONS [Concomitant]

REACTIONS (2)
  - KETOACIDOSIS [None]
  - MYOCARDIAL INFARCTION [None]
